FAERS Safety Report 10918220 (Version 1)
Quarter: 2015Q1

REPORT INFORMATION
  Report Type: Spontaneous
  Country: US (occurrence: US)
  Receive Date: 20150316
  Receipt Date: 20150316
  Transmission Date: 20150721
  Serious: No
  Sender: FDA-Public Use
  Company Number: US-GALDERMA-US14004407

PATIENT
  Age: 54 Year
  Sex: Female

DRUGS (3)
  1. ROSE GLYCERIN SOAP [Concomitant]
     Indication: THERAPEUTIC SKIN CARE TOPICAL
     Route: 061
  2. EUCERIN MOISTURIZER [Concomitant]
     Indication: DRY SKIN PROPHYLAXIS
     Route: 061
  3. TRI-LUMA [Suspect]
     Active Substance: FLUOCINOLONE ACETONIDE\HYDROQUINONE\TRETINOIN
     Indication: SKIN HYPERPIGMENTATION
     Route: 061
     Dates: start: 201410, end: 201411

REACTIONS (8)
  - Scab [Not Recovered/Not Resolved]
  - Condition aggravated [Recovered/Resolved]
  - Skin depigmentation [Not Recovered/Not Resolved]
  - Pruritus [Recovering/Resolving]
  - Product use issue [Recovered/Resolved]
  - Rash [Recovering/Resolving]
  - Rash papular [Recovering/Resolving]
  - Erythema [Recovered/Resolved]

NARRATIVE: CASE EVENT DATE: 201410
